FAERS Safety Report 16624571 (Version 1)
Quarter: 2019Q3

REPORT INFORMATION
  Report Type: Spontaneous
  Country: US (occurrence: US)
  Receive Date: 20190611
  Receipt Date: 20190611
  Transmission Date: 20191004
  Serious: No
  Sender: FDA-Public Use
  Company Number: None

PATIENT

DRUGS (1)
  1. NEULASTA [Suspect]
     Active Substance: PEGFILGRASTIM
     Indication: RENAL CANCER
     Dates: start: 20190611

REACTIONS (1)
  - Off label use [None]

NARRATIVE: CASE EVENT DATE: 20190611
